FAERS Safety Report 12699565 (Version 2)
Quarter: 2022Q2

REPORT INFORMATION
  Report Type: Report from Study
  Country: US (occurrence: US)
  Receive Date: 20160830
  Receipt Date: 20220621
  Transmission Date: 20220721
  Serious: Yes (Hospitalization, Other)
  Sender: FDA-Public Use
  Company Number: US-KAMADA LIMITED-2016US001402

PATIENT
  Sex: Male

DRUGS (36)
  1. GLASSIA [Suspect]
     Active Substance: .ALPHA.1-PROTEINASE INHIBITOR HUMAN
     Indication: Alpha-1 antitrypsin deficiency
     Dosage: UNK
     Route: 042
  2. GLASSIA [Suspect]
     Active Substance: .ALPHA.1-PROTEINASE INHIBITOR HUMAN
     Indication: Alpha-1 antitrypsin deficiency
     Dosage: UNK
     Route: 042
  3. GLASSIA [Suspect]
     Active Substance: .ALPHA.1-PROTEINASE INHIBITOR HUMAN
     Dosage: UNK, 1/WEEK
     Route: 050
  4. GLASSIA [Suspect]
     Active Substance: .ALPHA.1-PROTEINASE INHIBITOR HUMAN
     Dosage: UNK, 1/WEEK
     Route: 050
  5. CLINDAMYCIN [Concomitant]
     Active Substance: CLINDAMYCIN
  6. METFORMIN [Concomitant]
     Active Substance: METFORMIN HYDROCHLORIDE
  7. ASPIRIN [Concomitant]
     Active Substance: ASPIRIN
  8. LEVEMIR [Concomitant]
     Active Substance: INSULIN DETEMIR
  9. LOTENSIN                           /00909102/ [Concomitant]
  10. LIPITOR [Concomitant]
     Active Substance: ATORVASTATIN CALCIUM
  11. VICTOZA [Concomitant]
     Active Substance: LIRAGLUTIDE
  12. COREG [Concomitant]
     Active Substance: CARVEDILOL
  13. LOVAZA [Concomitant]
     Active Substance: OMEGA-3-ACID ETHYL ESTERS
  14. TRICOR                             /00090101/ [Concomitant]
  15. IMDUR [Concomitant]
     Active Substance: ISOSORBIDE MONONITRATE
  16. NITROGLYCERIN [Concomitant]
     Active Substance: NITROGLYCERIN
  17. ALLEGRA [Concomitant]
     Active Substance: FEXOFENADINE HYDROCHLORIDE
  18. SINGULAIR [Concomitant]
     Active Substance: MONTELUKAST SODIUM
  19. AVAPRO [Concomitant]
     Active Substance: IRBESARTAN
  20. SPIRIVA [Concomitant]
     Active Substance: TIOTROPIUM BROMIDE MONOHYDRATE
  21. SYMBICORT [Concomitant]
     Active Substance: BUDESONIDE\FORMOTEROL FUMARATE DIHYDRATE
  22. PROAIR                             /00139502/ [Concomitant]
  23. ENTOCORT [Concomitant]
     Active Substance: BUDESONIDE
  24. PRILOSEC [Concomitant]
     Active Substance: OMEPRAZOLE MAGNESIUM
  25. ZANTAC [Concomitant]
     Active Substance: RANITIDINE HYDROCHLORIDE
  26. FOLIC ACID [Concomitant]
     Active Substance: FOLIC ACID
  27. ALLOPURINOL [Concomitant]
     Active Substance: ALLOPURINOL
  28. POTASSIUM CITRATE [Concomitant]
     Active Substance: POTASSIUM CITRATE
  29. FLOMAX [Concomitant]
     Active Substance: TAMSULOSIN HYDROCHLORIDE
  30. PROSCAR [Concomitant]
     Active Substance: FINASTERIDE
  31. NEURONTIN [Concomitant]
     Active Substance: GABAPENTIN
  32. CALTRATE                           /00944201/ [Concomitant]
  33. TESTOSTERONE [Concomitant]
     Active Substance: TESTOSTERONE
  34. VITAMIN B [Concomitant]
     Active Substance: VITAMIN B
  35. VITAMIN D3 [Concomitant]
     Active Substance: CHOLECALCIFEROL
  36. HYDROCHLOROTHIAZIDE [Concomitant]
     Active Substance: HYDROCHLOROTHIAZIDE

REACTIONS (3)
  - Cellulitis [Unknown]
  - Malaise [Not Recovered/Not Resolved]
  - Cough [Not Recovered/Not Resolved]
